FAERS Safety Report 13055544 (Version 1)
Quarter: 2016Q4

REPORT INFORMATION
  Report Type: Report from Study
  Country: FR (occurrence: FR)
  Receive Date: 20161222
  Receipt Date: 20161222
  Transmission Date: 20170207
  Serious: Yes (Hospitalization)
  Sender: FDA-Public Use
  Company Number: FR-HIKMA PHARMACEUTICALS CO. LTD-2016FR013602

PATIENT

DRUGS (2)
  1. INFLECTRA [Suspect]
     Active Substance: INFLIXIMAB-DYYB
     Dosage: 8000 MG, SINGLE
     Route: 042
     Dates: start: 20160831, end: 20160831
  2. INFLECTRA [Suspect]
     Active Substance: INFLIXIMAB-DYYB
     Indication: CROHN^S DISEASE
     Dosage: 8000 MG, SINGLE
     Route: 042
     Dates: start: 20160705, end: 20160705

REACTIONS (2)
  - Angina unstable [Recovered/Resolved]
  - Disease recurrence [Unknown]

NARRATIVE: CASE EVENT DATE: 20160720
